FAERS Safety Report 18594523 (Version 1)
Quarter: 2020Q4

REPORT INFORMATION
  Report Type: Spontaneous
  Country: FR (occurrence: FR)
  Receive Date: 20201209
  Receipt Date: 20201209
  Transmission Date: 20210114
  Serious: Yes (Hospitalization)
  Sender: FDA-Public Use
  Company Number: FR-ACCORD-210281

PATIENT
  Age: 41 Year
  Sex: Female
  Weight: 60 kg

DRUGS (3)
  1. CYAMEMAZINE/CYAMEMAZINE TARTRATE [Suspect]
     Active Substance: CYAMEMAZINE
     Route: 048
     Dates: start: 20201105, end: 20201105
  2. QUETIAPINE. [Suspect]
     Active Substance: QUETIAPINE
     Route: 048
     Dates: start: 20201105, end: 20201105
  3. TERALITHE [Suspect]
     Active Substance: LITHIUM CARBONATE
     Dosage: STRENGTH: 400 MG
     Route: 048
     Dates: start: 20201105, end: 20201105

REACTIONS (8)
  - Encopresis [Not Recovered/Not Resolved]
  - Dyskinesia [Recovered/Resolved]
  - Acute kidney injury [Recovered/Resolved]
  - Disinhibition [Recovered/Resolved]
  - Somnolence [Recovered/Resolved]
  - Poisoning deliberate [Unknown]
  - Enuresis [Not Recovered/Not Resolved]
  - Language disorder [Not Recovered/Not Resolved]

NARRATIVE: CASE EVENT DATE: 202011
